FAERS Safety Report 16828538 (Version 2)
Quarter: 2019Q4

REPORT INFORMATION
  Report Type: Report from Study
  Country: US (occurrence: US)
  Receive Date: 20190919
  Receipt Date: 20191108
  Transmission Date: 20200122
  Serious: Yes (Hospitalization, Other)
  Sender: FDA-Public Use
  Company Number: US-VERTEX PHARMACEUTICALS-2019-008742

PATIENT
  Sex: Male

DRUGS (1)
  1. ORKAMBI [Suspect]
     Active Substance: IVACAFTOR\LUMACAFTOR
     Indication: CYSTIC FIBROSIS
     Dosage: 200/125 MG TABLETS, USUAL DOSE
     Route: 048
     Dates: start: 20190103, end: 20190820

REACTIONS (4)
  - Acute kidney injury [Recovered/Resolved]
  - Dehydration [Unknown]
  - Rhabdomyolysis [Recovered/Resolved]
  - Heat illness [Unknown]

NARRATIVE: CASE EVENT DATE: 2019
